FAERS Safety Report 10866155 (Version 1)
Quarter: 2015Q1

REPORT INFORMATION
  Report Type: Spontaneous
  Country: GB (occurrence: None)
  Receive Date: 20150219
  Receipt Date: 20150219
  Transmission Date: 20150721
  Serious: Yes (Other)
  Sender: FDA-Public Use
  Company Number: 2015JUB00037

PATIENT

DRUGS (1)
  1. OLANZAPINE (LANZAPINE) UNKNOWN [Suspect]
     Active Substance: OLANZAPINE
     Indication: MAJOR DEPRESSION
     Dosage: DURANTION 366 DAYS

REACTIONS (4)
  - Pleurisy [None]
  - Pleural effusion [None]
  - Pulmonary granuloma [None]
  - Pulmonary eosinophilia [None]
